FAERS Safety Report 24467857 (Version 1)
Quarter: 2024Q4

REPORT INFORMATION
  Report Type: Spontaneous
  Country: US (occurrence: US)
  Receive Date: 20241018
  Receipt Date: 20241018
  Transmission Date: 20250115
  Serious: No
  Sender: Phathom Pharmaceuticals
  Company Number: US-PHATHOM PHARMACEUTICALS INC.-2024PHT00555

PATIENT
  Age: 49 Year
  Sex: Female
  Weight: 52.2 kg

DRUGS (16)
  1. VOQUEZNA [Suspect]
     Active Substance: VONOPRAZAN FUMARATE
     Dosage: 20 MG, 1X/DAY
     Route: 048
     Dates: start: 20240701, end: 20240705
  2. DIFLUCAN [Concomitant]
     Active Substance: FLUCONAZOLE
  3. UBRELVY [Concomitant]
     Active Substance: UBROGEPANT
  4. ZYRTEC [Concomitant]
     Active Substance: CETIRIZINE HYDROCHLORIDE
  5. PREMARIN [Concomitant]
     Active Substance: ESTROGENS, CONJUGATED
  6. ESTRADIOL TRANSDERMAL SYSTEM [Concomitant]
     Active Substance: ESTRADIOL
  7. SINGULAIR [Concomitant]
     Active Substance: MONTELUKAST SODIUM
  8. AMITRIPTYLINE [Concomitant]
     Active Substance: AMITRIPTYLINE
  9. PROGESTERONE [Concomitant]
     Active Substance: PROGESTERONE
  10. VESICARE [Concomitant]
     Active Substance: SOLIFENACIN SUCCINATE
  11. AZELASTINE [Concomitant]
     Active Substance: AZELASTINE
  12. TESTOSTERONE [Concomitant]
     Active Substance: TESTOSTERONE
  13. QULIPTA [Concomitant]
     Active Substance: ATOGEPANT
  14. SYNTHROID [Concomitant]
     Active Substance: LEVOTHYROXINE SODIUM
  15. AZITHROMYCIN [Concomitant]
     Active Substance: AZITHROMYCIN
  16. FLONASE [Concomitant]
     Active Substance: FLUTICASONE PROPIONATE

REACTIONS (1)
  - Malaise [Recovered/Resolved]

NARRATIVE: CASE EVENT DATE: 20240705
